FAERS Safety Report 6588898-2 (Version None)
Quarter: 2010Q1

REPORT INFORMATION
  Report Type: 
  Country: None (occurrence: None)
  Receive Date: 20100218
  Receipt Date: 20100205
  Transmission Date: 20100710
  Serious: Yes (Hospitalization)
  Sender: FDA-Public Use
  Company Number: US-ALEXION-A201000116

PATIENT
  Sex: Female
  Weight: 64 kg

DRUGS (17)
  1. SOLIRIS [Suspect]
     Indication: PAROXYSMAL NOCTURNAL HAEMOGLOBINURIA
     Dosage: 600 MG, QW X 4 WEEKS
     Route: 042
     Dates: start: 20080516, end: 20080613
  2. SOLIRIS [Suspect]
     Dosage: 900 MG, Q2W
     Route: 042
     Dates: start: 20080620, end: 20081219
  3. SOLIRIS [Suspect]
     Dosage: 900 MG, Q 12D
     Route: 042
     Dates: end: 20090101
  4. SOLIRIS [Suspect]
     Dosage: 900 MG, QW
     Route: 042
     Dates: start: 20090101
  5. PROGRAFT [Concomitant]
     Indication: IMMUNOSUPPRESSION
     Dosage: 1 MG, QD
     Route: 048
  6. COUMADIN [Concomitant]
     Indication: DEEP VEIN THROMBOSIS
     Dosage: 5 MG, QD
     Route: 048
  7. PENICILLIN                         /00000901/ [Concomitant]
     Dosage: 500 MG, QD
     Route: 048
  8. URSODIOL [Concomitant]
     Dosage: 300 MG, TID
     Route: 048
  9. ZOLOFT [Concomitant]
     Dosage: 100 MG, QD
     Route: 048
  10. CYTOVENE                           /00784201/ [Concomitant]
     Dosage: 500 MG, TID
     Route: 048
  11. MAGNESIUM [Concomitant]
     Dosage: 100 MG, TID
     Route: 048
  12. HYDROCORTISONE [Concomitant]
     Dosage: 15 MG, QD
     Route: 048
  13. NYSTATIN [Concomitant]
     Dosage: 20 MG, QD
     Route: 048
  14. MYCELEX [Concomitant]
     Dosage: 3-4 TIMES A DAY
     Route: 048
  15. BENADRYL [Concomitant]
     Dosage: IV INFUSION BEFORE SOLIRIS
     Route: 042
  16. TYLENOL (CAPLET) [Concomitant]
     Dosage: 650 MG, BEFORE SOLIRIS
     Route: 048
  17. PROCRIT                            /00909301/ [Concomitant]
     Dosage: 10000 IU, QW
     Route: 058

REACTIONS (4)
  - ATELECTASIS [None]
  - TRANSPLANT REJECTION [None]
  - VIRAL INFECTION [None]
  - VOMITING [None]
